FAERS Safety Report 24323098 (Version 3)
Quarter: 2024Q4

REPORT INFORMATION
  Report Type: Spontaneous
  Country: BE (occurrence: BE)
  Receive Date: 20240916
  Receipt Date: 20241128
  Transmission Date: 20250115
  Serious: No
  Sender: PFIZER
  Company Number: BE-PFIZER INC-202400249116

PATIENT
  Age: 65 Year
  Sex: Female

DRUGS (1)
  1. SOMATROPIN [Suspect]
     Active Substance: SOMATROPIN
     Dosage: UNK

REACTIONS (2)
  - Device leakage [Unknown]
  - Device use error [Unknown]
